FAERS Safety Report 7371583-7 (Version None)
Quarter: 2011Q1

REPORT INFORMATION
  Report Type: 
  Country: None (occurrence: None)
  Receive Date: 20110324
  Receipt Date: 20101007
  Transmission Date: 20110831
  Serious: Yes (Hospitalization)
  Sender: FDA-Public Use
  Company Number: US-BAYER-201020429NA

PATIENT
  Sex: Female
  Weight: 75 kg

DRUGS (31)
  1. COUMADIN [Concomitant]
     Indication: DEEP VEIN THROMBOSIS
  2. KETOCONAZOLE [Concomitant]
     Dates: start: 20021201
  3. HYDROCODONE BITARTRATE AND ACETAMINOPHEN [Concomitant]
     Dates: start: 20021201
  4. CODITUSS [Concomitant]
     Dates: start: 20021201
  5. CEPHALEXIN [Concomitant]
     Dates: start: 20021201
  6. SULFAMETH/TRIMETHROPRIM [Concomitant]
     Dates: start: 20050404
  7. FUROSEMIDE [Concomitant]
     Dates: start: 20021201
  8. CYANOCOBALAMIN [Concomitant]
     Dates: start: 20021201
  9. DIAZEPAM [Concomitant]
     Dates: start: 20021201
  10. LISINOPRIL [Concomitant]
     Indication: HYPERTENSION
     Dates: start: 19860101
  11. MEDROXYPROGESTERONE [Concomitant]
     Dates: start: 20021201
  12. MIRAPEX [Concomitant]
     Indication: RESTLESS LEGS SYNDROME
     Dosage: 12 MG (DAILY DOSE), ,
     Dates: start: 20030101
  13. METHYLPREDNISOLONE [Concomitant]
     Dates: start: 20021201
  14. HUMIBID [Concomitant]
     Dates: start: 20021201
  15. YASMIN [Suspect]
     Indication: CONTRACEPTION
     Route: 048
     Dates: start: 20080307
  16. COUMADIN [Concomitant]
     Indication: ILIAC VEIN OCCLUSION
     Dates: start: 20050404
  17. METOPROLOL [Concomitant]
     Indication: HYPERTENSION
     Dates: start: 19860101
  18. YAZ [Suspect]
     Indication: PRODUCT USED FOR UNKNOWN INDICATION
     Route: 048
  19. BIAXIN [Concomitant]
     Dates: start: 20050215
  20. WARFARIN [Concomitant]
     Dates: start: 20050421
  21. PROMETHAZINE W/ CODEINE [Concomitant]
     Dates: start: 20021201
  22. DIPHENOXYLATE HCL + ATROPINE SULFATE [Concomitant]
     Dates: start: 20021201
  23. YASMIN [Suspect]
     Indication: MENSTRUATION IRREGULAR
  24. AZOR [Concomitant]
     Dates: start: 20021201
  25. HYDROMET SYRUP [Concomitant]
     Dates: start: 20021201
  26. NEXIUM [Concomitant]
     Dates: start: 20021201
  27. PRINIVIL [Concomitant]
     Dosage: 10 MG (DAILY DOSE), ,
  28. YASMIN [Suspect]
     Indication: OVARIAN CYST
  29. IBUPROFEN [Concomitant]
  30. CLODERM [Concomitant]
     Dates: start: 20021201
  31. CARVEDILOL [Concomitant]
     Dates: start: 20021201

REACTIONS (3)
  - ILIAC VEIN OCCLUSION [None]
  - PELVIC PAIN [None]
  - DEEP VEIN THROMBOSIS [None]
